FAERS Safety Report 5929586-2 (Version None)
Quarter: 2008Q4

REPORT INFORMATION
  Report Type: 
  Country: None (occurrence: None)
  Receive Date: 20081024
  Receipt Date: 20081017
  Transmission Date: 20090506
  Serious: Yes (Hospitalization, Disabling)
  Sender: FDA-Public Use
  Company Number: US-MERCK-0704USA05983

PATIENT
  Age: 53 Year
  Sex: Male

DRUGS (2)
  1. FOSAMAX [Suspect]
     Indication: OSTEOPOROSIS
     Route: 048
     Dates: start: 20040630, end: 20050701
  2. FOSAMAX [Suspect]
     Indication: OSTEOPENIA
     Route: 048
     Dates: start: 20040630, end: 20050701

REACTIONS (23)
  - ANAEMIA [None]
  - ASTHENIA [None]
  - BACK DISORDER [None]
  - CEREBRAL ATROPHY [None]
  - CHILLS [None]
  - CONSTIPATION [None]
  - DEHYDRATION [None]
  - HAEMATEMESIS [None]
  - HAEMORRHOIDS [None]
  - HYPONATRAEMIA [None]
  - HYPOTHYROIDISM [None]
  - INTRACRANIAL HYPOTENSION [None]
  - MALNUTRITION [None]
  - OESOPHAGITIS [None]
  - OSTEOMYELITIS [None]
  - OSTEONECROSIS [None]
  - PARAESTHESIA [None]
  - PYREXIA [None]
  - RADICULOPATHY [None]
  - SPINAL OSTEOARTHRITIS [None]
  - SYNCOPE [None]
  - THROAT CANCER [None]
  - UPPER GASTROINTESTINAL HAEMORRHAGE [None]
